FAERS Safety Report 8940138 (Version 1)
Quarter: 2012Q4

REPORT INFORMATION
  Report Type: 
  Country: CN (occurrence: CN)
  Receive Date: 20121130
  Receipt Date: 20121130
  Transmission Date: 20130627
  Serious: Yes (Other)
  Sender: FDA-Public Use
  Company Number: CN-ABBOTT-12P-035-1013114-00

PATIENT
  Age: 42 Year
  Sex: Male

DRUGS (1)
  1. DEPAKINE CHRONO [Suspect]
     Indication: EPILEPSY
     Route: 048
     Dates: start: 2010

REACTIONS (5)
  - Drooling [Unknown]
  - Epilepsy [Unknown]
  - Convulsion [Unknown]
  - Loss of consciousness [Unknown]
  - Alopecia [Unknown]
